FAERS Safety Report 4475300-X (Version None)
Quarter: 2004Q4

REPORT INFORMATION
  Report Type: 
  Country: None (occurrence: None)
  Receive Date: 20041012
  Receipt Date: 20040929
  Transmission Date: 20050328
  Serious: Yes (Other)
  Sender: FDA-Public Use
  Company Number: 2004236458US

PATIENT
  Age: 81 Year
  Sex: Female
  Weight: 58 kg

DRUGS (5)
  1. CELEBREX [Suspect]
     Indication: ARTHRITIS
     Dosage: 200 MG, ORAL
     Route: 048
     Dates: start: 20040901
  2. IBUPROFEN [Suspect]
     Indication: BONE PAIN
     Dosage: 4 TO 6 QD
  3. ZOCOR [Concomitant]
  4. TOPROL-XL [Concomitant]
  5. SYNTHROID [Concomitant]

REACTIONS (3)
  - JOINT DISLOCATION [None]
  - RENAL DISORDER [None]
  - UPPER LIMB FRACTURE [None]
